FAERS Safety Report 11251140 (Version 1)
Quarter: 2015Q3

REPORT INFORMATION
  Report Type: Spontaneous
  Country: GB (occurrence: GB)
  Receive Date: 20150708
  Receipt Date: 20150708
  Transmission Date: 20151125
  Serious: Yes (Hospitalization, Other)
  Sender: FDA-Public Use
  Company Number: GB-ASTRAZENECA-2015SE64142

PATIENT
  Age: 86 Year
  Sex: Female

DRUGS (13)
  1. FUROSEMIDE. [Concomitant]
     Active Substance: FUROSEMIDE
  2. VENTOLIN [Concomitant]
     Active Substance: ALBUTEROL SULFATE
  3. PARACETAMOL [Concomitant]
     Active Substance: ACETAMINOPHEN
  4. FLUTICASONE [Concomitant]
     Active Substance: FLUTICASONE\FLUTICASONE PROPIONATE
     Route: 055
  5. SERETIDE [Concomitant]
     Active Substance: FLUTICASONE FUROATE\SALMETEROL XINAFOATE
     Route: 055
  6. ATORVASTATIN [Concomitant]
     Active Substance: ATORVASTATIN
  7. DOXAZOSIN [Concomitant]
     Active Substance: DOXAZOSIN\DOXAZOSIN MESYLATE
  8. AMLODIPINE [Concomitant]
     Active Substance: AMLODIPINE BESYLATE
  9. APIXABAN [Concomitant]
     Active Substance: APIXABAN
  10. LANSOPRAZOLE. [Concomitant]
     Active Substance: LANSOPRAZOLE
  11. LEVOTHYROXINE. [Concomitant]
     Active Substance: LEVOTHYROXINE
  12. EKLIRA GENUAIR [Suspect]
     Active Substance: ACLIDINIUM BROMIDE
     Indication: CHRONIC OBSTRUCTIVE PULMONARY DISEASE
     Dosage: ONE DOSE TWO TIME A DAY
     Route: 055
  13. PERINDOPRIL [Concomitant]
     Active Substance: PERINDOPRIL

REACTIONS (4)
  - Chest discomfort [Unknown]
  - Cellulitis [Unknown]
  - Product quality issue [Unknown]
  - Bladder cancer [Unknown]
